FAERS Safety Report 6333258-2 (Version None)
Quarter: 2009Q3

REPORT INFORMATION
  Report Type: 
  Country: None (occurrence: None)
  Receive Date: 20090828
  Receipt Date: 20090817
  Transmission Date: 20100115
  Serious: Yes (Hospitalization, Other)
  Sender: FDA-Public Use
  Company Number: US-PFIZER INC-2009256383

PATIENT
  Age: 50 Year
  Sex: Male

DRUGS (4)
  1. SULFASALAZINE [Suspect]
  2. ATENOLOL [Concomitant]
  3. CELECOXIB [Concomitant]
  4. ATORVASTATIN [Concomitant]

REACTIONS (3)
  - AGRANULOCYTOSIS [None]
  - APPENDICITIS [None]
  - NEUTROPENIA [None]
